FAERS Safety Report 10052291 (Version 2)
Quarter: 2014Q2

REPORT INFORMATION
  Report Type: Other
  Country: IT (occurrence: IT)
  Receive Date: 20140402
  Receipt Date: 20140602
  Transmission Date: 20141212
  Serious: Yes (Other)
  Sender: FDA-Public Use
  Company Number: IT-SUN PHARMACEUTICAL INDUSTRIES LTD-2014SUN00739

PATIENT
  Sex: 0

DRUGS (4)
  1. OXALIPLATINO SUN 5 MG/ML, CONCENTRATO PER SOLUZIONE PER INFUSIONE [Suspect]
     Indication: COLON CANCER
     Dosage: 100 MG CYCLICAL
     Route: 042
     Dates: start: 20130430, end: 20140221
  2. AVASTIN (ROCHE REGISTRATION LIMITED) (L01XC07) [Suspect]
     Indication: COLON CANCER
     Dosage: 240 MG CYCLICAL
     Route: 042
     Dates: start: 20130518, end: 20140219
  3. FLUOROURACILE AHCL (ACCORD HEALTHCARE LIMITED) (L01BC02) [Suspect]
     Indication: COLON CANCER
     Dosage: 3100 MG CYCLICAL
     Route: 042
     Dates: start: 20130430, end: 20140221
  4. PREFOLIC (ZAMBON ITALIA S.R.L.) (B03BB) [Concomitant]
     Indication: PRODUCT USED FOR UNKNOWN INDICATION

REACTIONS (2)
  - Pericardial effusion [Recovered/Resolved]
  - Chest pain [Recovered/Resolved]
